FAERS Safety Report 10449039 (Version 5)
Quarter: 2016Q3

REPORT INFORMATION
  Report Type: Report from Study
  Country: DE (occurrence: DE)
  Receive Date: 20140912
  Receipt Date: 20160805
  Transmission Date: 20161109
  Serious: Yes (Death, Hospitalization)
  Sender: FDA-Public Use
  Company Number: DE-ROCHE-1432306

PATIENT
  Age: 57 Year
  Sex: Female

DRUGS (1)
  1. ROACTEMRA [Suspect]
     Active Substance: TOCILIZUMAB
     Indication: RHEUMATOID ARTHRITIS
     Route: 058
     Dates: start: 20140630

REACTIONS (16)
  - Corneal disorder [Unknown]
  - Cholelithiasis [Recovered/Resolved]
  - Rib fracture [Unknown]
  - Abscess limb [Unknown]
  - Subcutaneous abscess [Recovered/Resolved]
  - Decubitus ulcer [Unknown]
  - White blood cell count increased [Not Recovered/Not Resolved]
  - Psoriasis [Recovered/Resolved]
  - Sepsis [Fatal]
  - Pancreatitis [Recovered/Resolved]
  - Gastric ulcer [Not Recovered/Not Resolved]
  - Wound [Unknown]
  - Injection site abscess [Recovering/Resolving]
  - Neuropathic arthropathy [Unknown]
  - Diabetes mellitus [Not Recovered/Not Resolved]
  - Pneumonia [Unknown]

NARRATIVE: CASE EVENT DATE: 20140818
